FAERS Safety Report 9306144 (Version 1)
Quarter: 2013Q2

REPORT INFORMATION
  Report Type: Spontaneous
  Country: US (occurrence: US)
  Receive Date: 20130523
  Receipt Date: 20130523
  Transmission Date: 20140414
  Serious: Yes (Other)
  Sender: FDA-Public Use
  Company Number: US-JNJFOC-20130214915

PATIENT
  Age: 78 Year
  Sex: Male
  Weight: 133.81 kg

DRUGS (5)
  1. XARELTO [Suspect]
     Indication: CEREBROVASCULAR ACCIDENT PROPHYLAXIS
     Route: 048
     Dates: start: 20130107, end: 20130108
  2. XARELTO [Suspect]
     Indication: ATRIAL FIBRILLATION
     Route: 048
     Dates: start: 20130107, end: 20130108
  3. WARFARIN [Suspect]
     Indication: ANTICOAGULANT THERAPY
     Dosage: 5MG 5 X 1 WEEK, 7.5 MG 2 X 1 WEEK
     Route: 065
  4. WARFARIN [Suspect]
     Indication: ANTICOAGULANT THERAPY
     Route: 065
     Dates: end: 20130106
  5. ASPIRIN [Suspect]
     Indication: ANTIPLATELET THERAPY
     Route: 065

REACTIONS (3)
  - Haemorrhage [Recovered/Resolved]
  - Melaena [Recovered/Resolved]
  - Gastric ulcer [Unknown]
